FAERS Safety Report 16245567 (Version 1)
Quarter: 2019Q2

REPORT INFORMATION
  Report Type: Spontaneous
  Country: US (occurrence: US)
  Receive Date: 20190426
  Receipt Date: 20190426
  Transmission Date: 20190711
  Serious: Yes (Other)
  Sender: FDA-Public Use
  Company Number: US-CELGENEUS-USA-20190408614

PATIENT
  Age: 78 Year
  Sex: Male
  Weight: 76.73 kg

DRUGS (55)
  1. PANTOPRAZOLE [Concomitant]
     Active Substance: PANTOPRAZOLE
     Indication: NAUSEA
  2. RANITIDINE. [Concomitant]
     Active Substance: RANITIDINE
     Indication: DECREASED APPETITE
     Dosage: 300 MILLIGRAM
     Route: 065
  3. OMEGA 3 [Concomitant]
     Active Substance: OMEGA-3 FATTY ACIDS
     Indication: NEUROPATHY PERIPHERAL
  4. EFFEXOR [Concomitant]
     Active Substance: VENLAFAXINE HYDROCHLORIDE
     Indication: MULTIPLE ALLERGIES
  5. ELIQUIS [Concomitant]
     Active Substance: APIXABAN
     Indication: CARDIAC DISORDER
  6. ASPIRIN. [Concomitant]
     Active Substance: ASPIRIN
     Indication: CARDIAC DISORDER
  7. DEXAMETHASONE. [Concomitant]
     Active Substance: DEXAMETHASONE
     Indication: PLASMA CELL MYELOMA
  8. DEXAMETHASONE. [Concomitant]
     Active Substance: DEXAMETHASONE
     Indication: HYPERTENSION
  9. MEGESTROL [Concomitant]
     Active Substance: MEGESTROL
     Indication: NAUSEA
  10. ONDANSETRON [Concomitant]
     Active Substance: ONDANSETRON
     Indication: NAUSEA
  11. EFFEXOR [Concomitant]
     Active Substance: VENLAFAXINE HYDROCHLORIDE
     Indication: DEPRESSION
     Dosage: 150 MILLIGRAM
     Route: 065
  12. STOOL SOFTENER (DOCUSATE) [Concomitant]
     Active Substance: DOCUSATE
     Indication: EYE DISORDER
  13. LIPOFLAVONOID [Concomitant]
     Active Substance: UNSPECIFIED INGREDIENT
     Indication: EYE DISORDER
  14. REVLIMID [Suspect]
     Active Substance: LENALIDOMIDE
     Indication: PLASMA CELL MYELOMA
     Dosage: 15 MILLIGRAM
     Route: 048
     Dates: start: 20180703
  15. VITAMIN D NOS [Concomitant]
     Active Substance: VITAMIN D NOS
     Indication: NEUROPATHY PERIPHERAL
  16. EFFEXOR [Concomitant]
     Active Substance: VENLAFAXINE HYDROCHLORIDE
     Indication: ANXIETY
  17. ASPIRIN. [Concomitant]
     Active Substance: ASPIRIN
     Indication: ANTICOAGULANT THERAPY
     Dosage: 81 MILLIGRAM
     Route: 065
  18. DEXAMETHASONE. [Concomitant]
     Active Substance: DEXAMETHASONE
     Indication: HYPERLIPIDAEMIA
     Dosage: 20 MILLIGRAM
     Route: 065
  19. MEGESTROL [Concomitant]
     Active Substance: MEGESTROL
     Indication: GASTROOESOPHAGEAL REFLUX DISEASE
  20. ONDANSETRON [Concomitant]
     Active Substance: ONDANSETRON
     Indication: DECREASED APPETITE
     Dosage: 4 MILLIGRAM
     Route: 065
  21. SAW PALMETTO [Concomitant]
     Active Substance: HERBALS\SAW PALMETTO
     Indication: PAIN
     Dosage: 160 MILLIGRAM
     Route: 065
  22. MEGESTROL [Concomitant]
     Active Substance: MEGESTROL
     Indication: DECREASED APPETITE
     Dosage: 40 MILLIGRAM
     Route: 065
  23. OMEGA 3 [Concomitant]
     Active Substance: OMEGA-3 FATTY ACIDS
     Indication: PAIN
     Dosage: 500 MILLIGRAM
     Route: 065
  24. TAMSULOSIN [Concomitant]
     Active Substance: TAMSULOSIN
     Indication: BENIGN PROSTATIC HYPERPLASIA
  25. ZYRTEC [Concomitant]
     Active Substance: CETIRIZINE HYDROCHLORIDE
     Indication: BENIGN PROSTATIC HYPERPLASIA
  26. STOOL SOFTENER (DOCUSATE) [Concomitant]
     Active Substance: DOCUSATE
     Indication: CONSTIPATION
     Dosage: 100 MILLIGRAM
     Route: 065
  27. LIPOFLAVONOID [Concomitant]
     Active Substance: UNSPECIFIED INGREDIENT
     Indication: TINNITUS
  28. PRESERVISION AREDS 2 [Concomitant]
     Active Substance: MINERALS\VITAMINS
     Indication: CONSTIPATION
     Route: 065
  29. LOVASTATIN. [Concomitant]
     Active Substance: LOVASTATIN
     Indication: PLASMA CELL MYELOMA
  30. METOPROLOL. [Concomitant]
     Active Substance: METOPROLOL
     Indication: HYPERLIPIDAEMIA
     Dosage: 50 MILLIGRAM
     Route: 065
  31. RANITIDINE. [Concomitant]
     Active Substance: RANITIDINE
     Indication: NAUSEA
  32. RANITIDINE. [Concomitant]
     Active Substance: RANITIDINE
     Indication: GASTROOESOPHAGEAL REFLUX DISEASE
  33. SAW PALMETTO [Concomitant]
     Active Substance: HERBALS\SAW PALMETTO
     Indication: NEUROPATHY PERIPHERAL
  34. CENTRUM SILVER 50+ MENS [Concomitant]
     Indication: NEUROPATHY PERIPHERAL
  35. TAMSULOSIN [Concomitant]
     Active Substance: TAMSULOSIN
     Indication: MULTIPLE ALLERGIES
  36. ZYRTEC [Concomitant]
     Active Substance: CETIRIZINE HYDROCHLORIDE
     Indication: DEPRESSION
     Dosage: 10 MILLIGRAM
     Route: 065
  37. STOOL SOFTENER (DOCUSATE) [Concomitant]
     Active Substance: DOCUSATE
     Indication: TINNITUS
  38. METOPROLOL. [Concomitant]
     Active Substance: METOPROLOL
     Indication: HYPERTENSION
  39. ONDANSETRON [Concomitant]
     Active Substance: ONDANSETRON
     Indication: GASTROOESOPHAGEAL REFLUX DISEASE
  40. VITAMIN D NOS [Concomitant]
     Active Substance: VITAMIN D NOS
     Indication: PAIN
     Dosage: 1000 IU (INTERNATIONAL UNIT)
     Route: 065
  41. LIPOFLAVONOID [Concomitant]
     Active Substance: UNSPECIFIED INGREDIENT
     Indication: CONSTIPATION
     Route: 065
  42. PRESERVISION AREDS 2 [Concomitant]
     Active Substance: MINERALS\VITAMINS
     Indication: EYE DISORDER
  43. LOVASTATIN. [Concomitant]
     Active Substance: LOVASTATIN
     Indication: HYPERLIPIDAEMIA
     Dosage: 40 MILLIGRAM
     Route: 065
  44. LOVASTATIN. [Concomitant]
     Active Substance: LOVASTATIN
     Indication: HYPERTENSION
  45. PANTOPRAZOLE [Concomitant]
     Active Substance: PANTOPRAZOLE
     Indication: DECREASED APPETITE
     Dosage: 40 MILLIGRAM
     Route: 065
  46. PANTOPRAZOLE [Concomitant]
     Active Substance: PANTOPRAZOLE
     Indication: GASTROOESOPHAGEAL REFLUX DISEASE
  47. CENTRUM SILVER 50+ MENS [Concomitant]
     Indication: PAIN
     Route: 065
  48. EFFEXOR [Concomitant]
     Active Substance: VENLAFAXINE HYDROCHLORIDE
     Indication: BENIGN PROSTATIC HYPERPLASIA
  49. TAMSULOSIN [Concomitant]
     Active Substance: TAMSULOSIN
     Indication: DEPRESSION
     Dosage: .4 MILLIGRAM
     Route: 065
  50. TAMSULOSIN [Concomitant]
     Active Substance: TAMSULOSIN
     Indication: ANXIETY
  51. ZYRTEC [Concomitant]
     Active Substance: CETIRIZINE HYDROCHLORIDE
     Indication: ANXIETY
  52. ZYRTEC [Concomitant]
     Active Substance: CETIRIZINE HYDROCHLORIDE
     Indication: MULTIPLE ALLERGIES
  53. ELIQUIS [Concomitant]
     Active Substance: APIXABAN
     Indication: ANTICOAGULANT THERAPY
     Dosage: 2.5 MILLIGRAM
     Route: 065
  54. PRESERVISION AREDS 2 [Concomitant]
     Active Substance: MINERALS\VITAMINS
     Indication: TINNITUS
  55. METOPROLOL. [Concomitant]
     Active Substance: METOPROLOL
     Indication: PLASMA CELL MYELOMA

REACTIONS (1)
  - Pancytopenia [Not Recovered/Not Resolved]

NARRATIVE: CASE EVENT DATE: 20190422
